FAERS Safety Report 20768251 (Version 1)
Quarter: 2022Q2

REPORT INFORMATION
  Report Type: Spontaneous
  Country: US (occurrence: US)
  Receive Date: 20220429
  Receipt Date: 20220429
  Transmission Date: 20220720
  Serious: No
  Sender: FDA-Public Use
  Company Number: US-MAYNE PHARMA-2022MYN000055

PATIENT
  Age: 87 Year
  Sex: Female

DRUGS (1)
  1. FLUOROURACIL [Suspect]
     Active Substance: FLUOROURACIL
     Indication: Basal cell carcinoma
     Dosage: 5%, BID
     Route: 061
     Dates: start: 20220227, end: 20220301

REACTIONS (3)
  - Ocular hyperaemia [Unknown]
  - Nasal discomfort [Unknown]
  - Burning sensation [Unknown]

NARRATIVE: CASE EVENT DATE: 20220228
